FAERS Safety Report 25625877 (Version 1)
Quarter: 2025Q3

REPORT INFORMATION
  Report Type: Spontaneous
  Country: US (occurrence: US)
  Receive Date: 20250731
  Receipt Date: 20250731
  Transmission Date: 20251021
  Serious: Yes (Other)
  Sender: AUROBINDO
  Company Number: US-AUROBINDO-AUR-APL-2025-038573

PATIENT
  Age: 29 Year
  Sex: Female

DRUGS (13)
  1. RIVAROXABAN [Suspect]
     Active Substance: RIVAROXABAN
     Indication: Thrombosis prophylaxis
     Route: 065
  2. RIVAROXABAN [Suspect]
     Active Substance: RIVAROXABAN
     Indication: Budd-Chiari syndrome
  3. SPIRONOLACTONE [Suspect]
     Active Substance: SPIRONOLACTONE
     Indication: Ascites
     Route: 065
  4. HYDROXYUREA [Concomitant]
     Active Substance: HYDROXYUREA
     Indication: Polycythaemia vera
     Route: 065
  5. ECULIZUMAB [Concomitant]
     Active Substance: ECULIZUMAB
     Indication: Paroxysmal nocturnal haemoglobinuria
     Route: 065
  6. RAVULIZUMAB [Concomitant]
     Active Substance: RAVULIZUMAB
     Indication: Paroxysmal nocturnal haemoglobinuria
     Route: 042
  7. RAVULIZUMAB [Concomitant]
     Active Substance: RAVULIZUMAB
     Route: 042
  8. TACROLIMUS [Concomitant]
     Active Substance: TACROLIMUS
     Indication: Immunosuppressant drug therapy
     Route: 065
  9. ENOXAPARIN [Concomitant]
     Active Substance: ENOXAPARIN
     Indication: Budd-Chiari syndrome
     Route: 065
  10. ENOXAPARIN [Concomitant]
     Active Substance: ENOXAPARIN
     Indication: Thrombosis
  11. HEPARIN [Concomitant]
     Active Substance: HEPARIN SODIUM
     Indication: Thrombosis
     Route: 065
  12. HEPARIN [Concomitant]
     Active Substance: HEPARIN SODIUM
     Indication: Budd-Chiari syndrome
  13. RUXOLITINIB [Concomitant]
     Active Substance: RUXOLITINIB
     Indication: Polycythaemia vera
     Route: 065

REACTIONS (1)
  - Drug ineffective [Unknown]
